FAERS Safety Report 8227753-9 (Version None)
Quarter: 2012Q1

REPORT INFORMATION
  Report Type: 
  Country: None (occurrence: None)
  Receive Date: 20120322
  Receipt Date: 20120316
  Transmission Date: 20120608
  Serious: Yes (Death)
  Sender: FDA-Public Use
  Company Number: GB-PFIZER INC-2012070940

PATIENT
  Age: 85 Year
  Sex: Female

DRUGS (2)
  1. PREGABALIN [Suspect]
     Indication: GENERALISED ANXIETY DISORDER
     Dosage: 100 MG, 3X/DAY
  2. LORAZEPAM [Concomitant]
     Dosage: HIGH DOSE AS REQUIRED

REACTIONS (1)
  - DEATH [None]
